FAERS Safety Report 7267103-8 (Version None)
Quarter: 2011Q1

REPORT INFORMATION
  Report Type: 
  Country: None (occurrence: None)
  Receive Date: 20110201
  Receipt Date: 20110125
  Transmission Date: 20110831
  Serious: Yes (Hospitalization, Other)
  Sender: FDA-Public Use
  Company Number: PHHY2010JP82048

PATIENT
  Age: 55 Year
  Sex: Male

DRUGS (1)
  1. CO-DIOVAN [Suspect]
     Dosage: 1 DF DAILY
     Route: 048
     Dates: start: 20100812, end: 20101120

REACTIONS (2)
  - PNEUMONIA [None]
  - DYSPNOEA [None]
